FAERS Safety Report 25258967 (Version 3)
Quarter: 2025Q2

REPORT INFORMATION
  Report Type: Spontaneous
  Country: US (occurrence: US)
  Receive Date: 20250501
  Receipt Date: 20250604
  Transmission Date: 20250717
  Serious: No
  Sender: ROCHE
  Company Number: US-ROCHE-10000268701

PATIENT
  Sex: Male
  Weight: 118.84 kg

DRUGS (21)
  1. ACTEMRA ACTPEN [Suspect]
     Active Substance: TOCILIZUMAB
     Indication: Rheumatoid arthritis
     Dosage: STRENGTH: 162MG/0.9ML
     Route: 058
     Dates: start: 2025
  2. ACTEMRA ACTPEN [Suspect]
     Active Substance: TOCILIZUMAB
     Indication: Essential hypertension
  3. DULOXETINE H POW [Concomitant]
  4. FLONASE ALLE SUS [Concomitant]
  5. FOLIC ACID POW [Concomitant]
  6. GABAPENTIN POW [Concomitant]
  7. METFORMIN HC POW [Concomitant]
  8. METHOTREXATE POW [Concomitant]
  9. MOUNJARO [Concomitant]
     Active Substance: TIRZEPATIDE
  10. NOVOLOG [Concomitant]
     Active Substance: INSULIN ASPART
  11. METRONIDAZOLE [Concomitant]
     Active Substance: METRONIDAZOLE
  12. MONTELUKAST [Concomitant]
     Active Substance: MONTELUKAST
  13. PIOGLITAZONE [Concomitant]
     Active Substance: PIOGLITAZONE
  14. VICTOZA [Concomitant]
     Active Substance: LIRAGLUTIDE
  15. LANTUS [Concomitant]
     Active Substance: INSULIN GLARGINE
  16. ATORVASTATIN [Concomitant]
     Active Substance: ATORVASTATIN
  17. METHYLPREDNISOLONE [Concomitant]
     Active Substance: METHYLPREDNISOLONE
  18. TRAMADOL [Concomitant]
     Active Substance: TRAMADOL
  19. APIDRA [Concomitant]
     Active Substance: INSULIN GLULISINE
  20. NASONEX [Concomitant]
     Active Substance: MOMETASONE FUROATE
  21. ORENCIA [Concomitant]
     Active Substance: ABATACEPT
     Indication: Rheumatoid arthritis
     Dates: start: 202203, end: 202502

REACTIONS (7)
  - Off label use [Unknown]
  - Depression [Not Recovered/Not Resolved]
  - Initial insomnia [Not Recovered/Not Resolved]
  - Fatigue [Not Recovered/Not Resolved]
  - Asthenia [Not Recovered/Not Resolved]
  - Memory impairment [Not Recovered/Not Resolved]
  - Middle insomnia [Not Recovered/Not Resolved]
